FAERS Safety Report 25644602 (Version 1)
Quarter: 2025Q3

REPORT INFORMATION
  Report Type: Spontaneous
  Country: US (occurrence: None)
  Receive Date: 20250804
  Receipt Date: 20250804
  Transmission Date: 20251020
  Serious: Yes (Other)
  Sender: FDA-CTU
  Company Number: None

PATIENT
  Age: 23 Year
  Sex: Male
  Weight: 74.25 kg

DRUGS (2)
  1. LEVOFLOXACIN [Suspect]
     Active Substance: LEVOFLOXACIN
     Indication: Infection
     Dosage: OTHER QUANTITY : 10 TABLET(S);?FREQUENCY : DAILY;?
     Route: 048
     Dates: start: 20250605, end: 20250614
  2. LEVOFLOXACIN [Suspect]
     Active Substance: LEVOFLOXACIN
     Indication: Penile pain

REACTIONS (13)
  - Ear pain [None]
  - Tinnitus [None]
  - Headache [None]
  - Hyperaesthesia [None]
  - Eye pain [None]
  - Joint stiffness [None]
  - Neuropathy peripheral [None]
  - Vision blurred [None]
  - Neck pain [None]
  - Vitreous floaters [None]
  - Fatigue [None]
  - Derealisation [None]
  - Anxiety [None]

NARRATIVE: CASE EVENT DATE: 20250618
